FAERS Safety Report 17757117 (Version 1)
Quarter: 2020Q2

REPORT INFORMATION
  Report Type: Report from Study
  Country: US (occurrence: US)
  Receive Date: 20200507
  Receipt Date: 20200507
  Transmission Date: 20200714
  Serious: Yes (Other)
  Sender: FDA-Public Use
  Company Number: US-BRISTOL-MYERS SQUIBB COMPANY-BMS-2020-035200

PATIENT
  Age: 86 Year
  Sex: Female

DRUGS (2)
  1. APIXABAN [Suspect]
     Active Substance: APIXABAN
     Indication: PRODUCT USED FOR UNKNOWN INDICATION
     Dosage: 2.5 MILLIGRAM, BID (ONE-HALF TABLET IN THE MORNING AND ONE-HALF TABLET IN THE EVENING)
     Route: 048
  2. APIXABAN [Suspect]
     Active Substance: APIXABAN
     Indication: CEREBROVASCULAR ACCIDENT PROPHYLAXIS
     Dosage: 5 MILLIGRAM
     Route: 048
     Dates: start: 2019

REACTIONS (7)
  - Groin pain [Unknown]
  - Weight decreased [Unknown]
  - Intentional product use issue [Unknown]
  - Vessel puncture site haemorrhage [Unknown]
  - Fibromyalgia [Unknown]
  - Pain [Unknown]
  - Arthropathy [Unknown]

NARRATIVE: CASE EVENT DATE: 202002
